FAERS Safety Report 10270986 (Version 1)
Quarter: 2014Q3

REPORT INFORMATION
  Report Type: Spontaneous
  Country: IL (occurrence: IL)
  Receive Date: 20140701
  Receipt Date: 20140701
  Transmission Date: 20150326
  Serious: Yes (Hospitalization, Other)
  Sender: FDA-Public Use
  Company Number: IL-TEVA-490968ISR

PATIENT

DRUGS (1)
  1. GLUCOPHAGE [Suspect]
     Active Substance: METFORMIN HYDROCHLORIDE

REACTIONS (5)
  - Renal failure acute [Unknown]
  - Dehydration [Unknown]
  - Lactic acidosis [Unknown]
  - Diarrhoea [Unknown]
  - Gastroenteritis [Unknown]
